FAERS Safety Report 12208092 (Version 2)
Quarter: 2016Q2

REPORT INFORMATION
  Report Type: Spontaneous
  Country: US (occurrence: US)
  Receive Date: 20160324
  Receipt Date: 20160615
  Transmission Date: 20160815
  Serious: Yes (Other)
  Sender: FDA-Public Use
  Company Number: US-BRISTOL-MYERS SQUIBB COMPANY-BMS-2016-020754

PATIENT
  Sex: Female
  Weight: 69.39 kg

DRUGS (5)
  1. METOPROLOL. [Concomitant]
     Active Substance: METOPROLOL
     Indication: PRODUCT USED FOR UNKNOWN INDICATION
     Route: 065
  2. VITAMINS                           /00067501/ [Concomitant]
     Active Substance: VITAMINS
     Indication: PRODUCT USED FOR UNKNOWN INDICATION
     Route: 065
  3. LANTUS [Concomitant]
     Active Substance: INSULIN GLARGINE
     Indication: PRODUCT USED FOR UNKNOWN INDICATION
     Route: 065
  4. NOVOLOG [Concomitant]
     Active Substance: INSULIN ASPART
     Indication: PRODUCT USED FOR UNKNOWN INDICATION
     Route: 065
  5. ELIQUIS [Suspect]
     Active Substance: APIXABAN
     Indication: CEREBROVASCULAR ACCIDENT PROPHYLAXIS
     Dosage: 5 MG, BID
     Route: 048

REACTIONS (16)
  - Salivary gland enlargement [Unknown]
  - Swollen tongue [Unknown]
  - Hypotension [Unknown]
  - Headache [Unknown]
  - Insomnia [Unknown]
  - Gingival swelling [Unknown]
  - Upper-airway cough syndrome [Unknown]
  - Vision blurred [Unknown]
  - Blood glucose fluctuation [Unknown]
  - Mass [Unknown]
  - Extrasystoles [Unknown]
  - Gait disturbance [Unknown]
  - Amnesia [Unknown]
  - Arthralgia [Unknown]
  - Glossodynia [Unknown]
  - Balance disorder [Unknown]
